FAERS Safety Report 24751338 (Version 1)
Quarter: 2024Q4

REPORT INFORMATION
  Report Type: Spontaneous
  Country: US (occurrence: US)
  Receive Date: 20241219
  Receipt Date: 20241219
  Transmission Date: 20250114
  Serious: No
  Sender: CSL BEHRING
  Company Number: US-BEH-2024187561

PATIENT
  Age: 63 Year
  Sex: Female

DRUGS (4)
  1. CORIFACT [Suspect]
     Active Substance: FACTOR XIII CONCENTRATE (HUMAN)
     Indication: Antithrombin III deficiency
     Dosage: 2200 UNITS(EVERY 28 DAYSS)
     Route: 042
     Dates: start: 202304
  2. GAMUNEX [Concomitant]
     Active Substance: HUMAN IMMUNOGLOBULIN G
     Dosage: 5 G/50 ML
  3. GAMUNEX [Concomitant]
     Active Substance: HUMAN IMMUNOGLOBULIN G
     Dosage: 20 G/200ML
  4. AMICAR [Concomitant]
     Active Substance: AMINOCAPROIC ACID
     Indication: Premedication
     Dosage: 6 PILLS OF AMICAR BEFORE, AFTER AND THEN ONE MORE
     Dates: start: 20241126

REACTIONS (2)
  - Contusion [Recovered/Resolved]
  - Insurance issue [Unknown]

NARRATIVE: CASE EVENT DATE: 20241122
